FAERS Safety Report 7435097-8 (Version None)
Quarter: 2011Q2

REPORT INFORMATION
  Report Type: 
  Country: None (occurrence: None)
  Receive Date: 20110425
  Receipt Date: 20110413
  Transmission Date: 20111010
  Serious: Yes (Hospitalization)
  Sender: FDA-Public Use
  Company Number: PHHY2011EC31306

PATIENT
  Sex: Female

DRUGS (2)
  1. STALEVO 100 [Suspect]
     Indication: PARKINSON'S DISEASE
     Dosage: 150/37.5/200MG 1 TABLET DAILY
     Route: 048
     Dates: start: 20100311, end: 20110201
  2. METHOTREXATE [Suspect]
     Indication: ARTHRITIS

REACTIONS (3)
  - TOXICITY TO VARIOUS AGENTS [None]
  - ASTHENIA [None]
  - IMMUNODEFICIENCY [None]
